FAERS Safety Report 6371992-9 (Version None)
Quarter: 2009Q3

REPORT INFORMATION
  Report Type: 
  Country: None (occurrence: None)
  Receive Date: 20090917
  Receipt Date: 20090904
  Transmission Date: 20100115
  Serious: Yes (Hospitalization)
  Sender: FDA-Public Use
  Company Number: ADR17802009

PATIENT
  Age: 73 Year
  Sex: Female

DRUGS (3)
  1. CITALOPRAM HYDROBROMIDE [Suspect]
     Indication: DEPRESSION
     Dosage: 20 MG, ORAL USE
     Route: 048
     Dates: start: 20070106, end: 20070707
  2. CALCICHEW D3 [Concomitant]
  3. FERROUS SULFATE TAB [Concomitant]

REACTIONS (1)
  - ANGLE CLOSURE GLAUCOMA [None]
